FAERS Safety Report 4543843-6 (Version None)
Quarter: 2005Q1

REPORT INFORMATION
  Report Type: 
  Country: None (occurrence: None)
  Receive Date: 20050103
  Receipt Date: 20040128
  Transmission Date: 20050727
  Serious: Yes (Hospitalization)
  Sender: FDA-Public Use
  Company Number: GXKR2004DE00608

PATIENT
  Age: 72 Year
  Sex: Male

DRUGS (13)
  1. BISOPROLOL (NGX) (BISOPROLOL) UNKNOWN [Suspect]
     Indication: HYPERTENSIVE HEART DISEASE
     Dosage: ORAL
     Route: 048
     Dates: start: 20031120
  2. DIGITOXIN TAB [Suspect]
     Indication: ATRIAL FIBRILLATION
     Dosage: ORAL
     Route: 048
     Dates: start: 20030602
  3. SORTIS ^GOEDECKE^ (ATORVASTATIN CALCIUM) [Concomitant]
  4. UNAT (TORASEMIDE) [Concomitant]
  5. ACETYLSALICYLIC ACID SRT [Concomitant]
  6. BLOPRESS (CANDESARTAN CILEXETIL) [Concomitant]
  7. VIANI (FLUTICASONE PROPIONATE, SALMETEROL XINAFOATE) [Concomitant]
  8. ACETYLCYSTEINE [Concomitant]
  9. NEXIUM MUPS (ESOMEPRAZOLE) [Concomitant]
  10. DREISAVIT N (AMMONIUM PERSULFATE, ASCORBIC ACID, BIOTIN, CALCIUM PANTO [Concomitant]
  11. FERRLECIT/GFR/ (FERRIC SODIUM GLUCONATE COMPLEX) [Concomitant]
  12. NEORECORMON (EPOETIN BETA) [Concomitant]
  13. DRESACARB (CALCIUM ACETATE) [Concomitant]

REACTIONS (3)
  - CARDIAC ARREST [None]
  - CARDIAC PACEMAKER INSERTION [None]
  - SYNCOPE [None]
